FAERS Safety Report 12313286 (Version 1)
Quarter: 2016Q2

REPORT INFORMATION
  Report Type: Spontaneous
  Country: US (occurrence: US)
  Receive Date: 20160428
  Receipt Date: 20160428
  Transmission Date: 20160815
  Serious: No
  Sender: FDA-Public Use
  Company Number: US-PFIZER INC-2016175218

PATIENT
  Sex: Female

DRUGS (1)
  1. LYRICA [Suspect]
     Active Substance: PREGABALIN
     Dosage: UNK

REACTIONS (6)
  - Burning sensation [Unknown]
  - Pain in extremity [Unknown]
  - Fibromyalgia [Unknown]
  - Malaise [Unknown]
  - Pelvic pain [Unknown]
  - Pain [Unknown]
